FAERS Safety Report 25219493 (Version 2)
Quarter: 2025Q2

REPORT INFORMATION
  Report Type: Report from Study
  Country: KR (occurrence: KR)
  Receive Date: 20250421
  Receipt Date: 20250528
  Transmission Date: 20250716
  Serious: Yes (Hospitalization)
  Sender: ALEXION PHARMACEUTICALS
  Company Number: KR-AstraZeneca-CH-00848445A

PATIENT
  Age: 65 Year

DRUGS (1)
  1. OSIMERTINIB [Suspect]
     Active Substance: OSIMERTINIB
     Indication: Lung carcinoma cell type unspecified stage IV
     Dosage: 80 MILLIGRAM, QD

REACTIONS (2)
  - Upper limb fracture [Recovering/Resolving]
  - Fall [Recovering/Resolving]
